FAERS Safety Report 17278842 (Version 1)
Quarter: 2020Q1

REPORT INFORMATION
  Report Type: Spontaneous
  Country: US (occurrence: US)
  Receive Date: 20200116
  Receipt Date: 20200116
  Transmission Date: 20200409
  Serious: Yes (Hospitalization)
  Sender: FDA-Public Use
  Company Number: US-PFIZER INC-2020018580

PATIENT
  Age: 29 Year
  Sex: Female
  Weight: 56.33 kg

DRUGS (1)
  1. SUTENT [Suspect]
     Active Substance: SUNITINIB MALATE
     Indication: RENAL CELL CARCINOMA
     Dosage: 37.5 MG, UNK

REACTIONS (1)
  - Human chorionic gonadotropin increased [Not Recovered/Not Resolved]

NARRATIVE: CASE EVENT DATE: 20200114
